FAERS Safety Report 5163262-1 (Version None)
Quarter: 2006Q4

REPORT INFORMATION
  Report Type: 
  Country: None (occurrence: None)
  Receive Date: 20061204
  Receipt Date: 20061120
  Transmission Date: 20070319
  Serious: Yes (Hospitalization)
  Sender: FDA-Public Use
  Company Number: FR-BRISTOL-MYERS SQUIBB COMPANY-13596465

PATIENT
  Age: 87 Year
  Sex: Male

DRUGS (10)
  1. FOZITEC [Suspect]
     Indication: HYPERTENSION
     Dosage: 20 MG UNTIL 19-AUG-2006, 10 MG- 19 AUG 2006 TO 31 AUG 2006; 20 MG 05 SEP 2006 ONWARDS
     Route: 048
     Dates: start: 20060819
  2. FOSINOPRIL SODIUM AND HYDROCHLOROTHIAZIDE [Suspect]
     Indication: HYPERTENSION
     Route: 048
     Dates: start: 20060831, end: 20060905
  3. BURINEX [Suspect]
     Indication: HYPERTENSION
     Route: 048
     Dates: start: 20060819, end: 20060828
  4. IXEL [Suspect]
     Indication: DYSTHYMIC DISORDER
     Dates: start: 20061019, end: 20061024
  5. LASIX [Suspect]
     Route: 048
     Dates: start: 20060828, end: 20060831
  6. FLECAINIDE ACETATE [Concomitant]
     Indication: ARRHYTHMIA
     Route: 048
  7. PERMIXON [Concomitant]
     Indication: BENIGN PROSTATIC HYPERPLASIA
     Route: 048
  8. OMIX [Concomitant]
     Indication: BENIGN PROSTATIC HYPERPLASIA
     Route: 048
     Dates: end: 20060909
  9. PROSCAR [Concomitant]
     Indication: BENIGN PROSTATIC HYPERPLASIA
     Route: 048
     Dates: start: 20060909
  10. STABLON [Concomitant]
     Indication: DYSTHYMIC DISORDER
     Route: 048
     Dates: start: 20060920

REACTIONS (2)
  - HYPONATRAEMIA [None]
  - ORTHOSTATIC HYPOTENSION [None]
